FAERS Safety Report 19560657 (Version 2)
Quarter: 2021Q4

REPORT INFORMATION
  Report Type: Spontaneous
  Country: US (occurrence: US)
  Receive Date: 20210715
  Receipt Date: 20211201
  Transmission Date: 20220303
  Serious: No
  Sender: FDA-Public Use
  Company Number: US-MYLANLABS-2021M1037513

PATIENT
  Sex: Female
  Weight: 63.03 kg

DRUGS (1)
  1. EPINEPHRINE [Suspect]
     Active Substance: EPINEPHRINE
     Indication: Food allergy
     Dosage: UNK
     Route: 058

REACTIONS (2)
  - Product storage error [Not Recovered/Not Resolved]
  - Liquid product physical issue [Not Recovered/Not Resolved]
